FAERS Safety Report 5401671-3 (Version None)
Quarter: 2007Q3

REPORT INFORMATION
  Report Type: 
  Country: None (occurrence: None)
  Receive Date: 20070731
  Receipt Date: 20061011
  Transmission Date: 20080115
  Serious: No
  Sender: FDA-Public Use
  Company Number: US-BRISTOL-MYERS SQUIBB COMPANY-13537659

PATIENT
  Age: 50 Year
  Sex: Female

DRUGS (3)
  1. EURAX [Suspect]
     Indication: INFECTION PARASITIC
  2. ELIMITE [Concomitant]
  3. SULFACETAMIDE SODIUM [Concomitant]

REACTIONS (3)
  - EYE IRRITATION [None]
  - SKIN BURNING SENSATION [None]
  - THROAT IRRITATION [None]
